FAERS Safety Report 7691482-0 (Version None)
Quarter: 2011Q3

REPORT INFORMATION
  Report Type: 
  Country: None (occurrence: None)
  Receive Date: 20110817
  Receipt Date: 20110817
  Transmission Date: 20111222
  Serious: No
  Sender: FDA-Public Use
  Company Number: None

PATIENT
  Age: 74 Year
  Sex: Female

DRUGS (1)
  1. TARCEVA [Suspect]
     Indication: NON-SMALL CELL LUNG CANCER
     Dosage: 100 MG QD PO
     Route: 048
     Dates: start: 20110301

REACTIONS (5)
  - BREAST DISCHARGE [None]
  - RASH [None]
  - SCAB [None]
  - HAIR GROWTH ABNORMAL [None]
  - NIPPLE PAIN [None]
